FAERS Safety Report 4434020-8 (Version None)
Quarter: 2004Q3

REPORT INFORMATION
  Report Type: 
  Country: None (occurrence: None)
  Receive Date: 20040825
  Receipt Date: 20040810
  Transmission Date: 20050211
  Serious: Yes (Other)
  Sender: FDA-Public Use
  Company Number: USA040875121

PATIENT
  Sex: Female

DRUGS (2)
  1. XIGRIS [Suspect]
     Indication: LOCALISED INFECTION
  2. XIGRIS [Suspect]
     Indication: STAPHYLOCOCCAL INFECTION

REACTIONS (1)
  - PLATELET COUNT DECREASED [None]
